FAERS Safety Report 11214375 (Version 1)
Quarter: 2015Q2

REPORT INFORMATION
  Report Type: Spontaneous
  Country: US (occurrence: US)
  Receive Date: 20150624
  Receipt Date: 20150624
  Transmission Date: 20150821
  Serious: No
  Sender: FDA-Public Use
  Company Number: US-BRISTOL-MYERS SQUIBB COMPANY-BMS-2015-040187

PATIENT
  Sex: Male

DRUGS (1)
  1. ELIQUIS [Suspect]
     Active Substance: APIXABAN
     Indication: ARTHRITIS
     Dosage: 2.5 MG, BID
     Route: 065

REACTIONS (3)
  - Off label use [Unknown]
  - Erythema [Unknown]
  - Peripheral swelling [Unknown]
